FAERS Safety Report 9266876 (Version 1)
Quarter: 2013Q2

REPORT INFORMATION
  Report Type: Spontaneous
  Country: US (occurrence: US)
  Receive Date: 20130501
  Receipt Date: 20130501
  Transmission Date: 20140414
  Serious: Yes (Other)
  Sender: FDA-Public Use
  Company Number: US-RB-008681-07

PATIENT
  Age: 0 None
  Sex: Female
  Weight: 2 kg

DRUGS (2)
  1. SUBOXONE [Suspect]
     Route: 064
     Dates: start: 200704, end: 20070807
  2. SUBOXONE [Suspect]
     Indication: DRUG DEPENDENCE
     Route: 064
     Dates: start: 20070808, end: 20071103

REACTIONS (7)
  - Drug withdrawal syndrome neonatal [Recovered/Resolved]
  - Foetal exposure during pregnancy [Recovered/Resolved]
  - Tremor neonatal [Recovered/Resolved]
  - Crying [Recovered/Resolved]
  - Diarrhoea neonatal [Recovered/Resolved]
  - Feeding disorder neonatal [Recovered/Resolved]
  - Gastrooesophageal reflux disease [Unknown]
